FAERS Safety Report 6663936-7 (Version None)
Quarter: 2010Q2

REPORT INFORMATION
  Report Type: 
  Country: None (occurrence: None)
  Receive Date: 20100401
  Receipt Date: 20100326
  Transmission Date: 20101027
  Serious: Yes (Hospitalization)
  Sender: FDA-Public Use
  Company Number: TR-ELI_LILLY_AND_COMPANY-TR201002001054

PATIENT
  Sex: Male

DRUGS (11)
  1. HUMALOG [Suspect]
     Indication: DIABETES MELLITUS
     Dosage: 12 U, EACH MORNING
     Route: 058
  2. HUMALOG [Suspect]
     Dosage: 10 U, EACH NOON
     Route: 058
  3. HUMALOG [Suspect]
     Dosage: 12 U, EACH EVENING
     Route: 058
  4. INSULIN GLARGINE [Concomitant]
     Dosage: 16 U, EACH EVENING
     Route: 065
  5. ANTIHYPERTENSIVES [Concomitant]
     Indication: HYPERTENSION
     Dosage: UNK, 2/D
  6. MOXIFLOXACIN HYDROCHLORIDE [Concomitant]
     Dosage: 400 MG, UNKNOWN
     Route: 048
  7. PARACETAMOL [Concomitant]
     Dosage: 500 MG, UNKNOWN
     Route: 048
  8. PANTOPRAZOL [Concomitant]
     Dosage: 20 MG, UNKNOWN
     Route: 048
  9. GABAPENTIN [Concomitant]
     Dosage: UNK, UNKNOWN
     Route: 048
  10. FUROSEMIDE [Concomitant]
     Dosage: UNK, UNKNOWN
     Route: 065
  11. DIAZEPAM [Concomitant]
     Dosage: UNK, UNKNOWN
     Route: 065

REACTIONS (1)
  - DIABETIC FOOT [None]
